FAERS Safety Report 4796374-2 (Version None)
Quarter: 2005Q4

REPORT INFORMATION
  Report Type: 
  Country: None (occurrence: None)
  Receive Date: 20051007
  Receipt Date: 20051007
  Transmission Date: 20060501
  Serious: Yes (Death, Hospitalization)
  Sender: FDA-Public Use
  Company Number: None

PATIENT
  Sex: Male
  Weight: 55 kg

DRUGS (5)
  1. CYTARABINE [Suspect]
     Indication: ACUTE LYMPHOCYTIC LEUKAEMIA
     Dosage: 70 MG
     Dates: start: 20050823, end: 20050823
  2. DAUNORUBICIN HCL [Suspect]
     Dosage: 80 MG
     Dates: start: 20050823, end: 20050830
  3. METHOTREXATE [Suspect]
     Dosage: 15 MG
     Dates: start: 20050830, end: 20050830
  4. PREDNISONE [Suspect]
     Dosage: 2185 MG
     Dates: start: 20050823, end: 20050917
  5. VINCRISTINE SULFATE [Suspect]
     Dosage: 8 MG
     Dates: start: 20050823, end: 20050913

REACTIONS (3)
  - ANGIOPATHY [None]
  - PNEUMONIA FUNGAL [None]
  - PULMONARY HAEMORRHAGE [None]
